FAERS Safety Report 6702337-X (Version None)
Quarter: 2010Q2

REPORT INFORMATION
  Report Type: 
  Country: None (occurrence: None)
  Receive Date: 20100429
  Receipt Date: 20100427
  Transmission Date: 20101027
  Serious: Yes (Life-Threatening, Other)
  Sender: FDA-Public Use
  Company Number: US-ROXANE LABORATORIES, INC.-2010-RO-00473RO

PATIENT
  Age: 24 Year
  Sex: Female

DRUGS (6)
  1. DIAZEPAM [Suspect]
     Indication: SUICIDE ATTEMPT
  2. FOMEPIZOLE [Suspect]
     Indication: DRUG TOXICITY
     Route: 042
  3. BICARBONATE [Suspect]
     Indication: DRUG TOXICITY
  4. PROPOFOL [Suspect]
     Indication: SEDATION
  5. PROPOFOL [Suspect]
     Indication: PROPHYLAXIS
  6. NOREPINEPHRINE [Suspect]
     Indication: MEAN ARTERIAL PRESSURE

REACTIONS (5)
  - AMNESIA [None]
  - DRUG TOXICITY [None]
  - HYPOXIC ENCEPHALOPATHY [None]
  - PNEUMONIA ASPIRATION [None]
  - RENAL FAILURE ACUTE [None]
